FAERS Safety Report 5284880-6 (Version None)
Quarter: 2007Q1

REPORT INFORMATION
  Report Type: 
  Country: None (occurrence: None)
  Receive Date: 20061226
  Receipt Date: 20060828
  Transmission Date: 20070707
  Serious: Yes (Hospitalization)
  Sender: FDA-Public Use
  Company Number: WAES 0608USA06615

PATIENT

DRUGS (2)
  1. ZETIA [Suspect]
     Dosage: 20 MG/DAILY/PO
     Route: 048
     Dates: end: 20060825
  2. LIPITOR [Concomitant]

REACTIONS (3)
  - ADVERSE EVENT [None]
  - NO ADVERSE EFFECT [None]
  - OVERDOSE [None]
